FAERS Safety Report 16116431 (Version 2)
Quarter: 2019Q2

REPORT INFORMATION
  Report Type: Spontaneous
  Country: DE (occurrence: DE)
  Receive Date: 20190326
  Receipt Date: 20190401
  Transmission Date: 20190711
  Serious: Yes (Other)
  Sender: FDA-Public Use
  Company Number: DE-ASTELLAS-2019US012249

PATIENT
  Age: 81 Year
  Sex: Female

DRUGS (1)
  1. BETMIGA [Suspect]
     Active Substance: MIRABEGRON
     Indication: URGE INCONTINENCE
     Dosage: 1 X 1, PROBABLY ACCIDENTALLY MORE OFTEN, UNKNOWN FREQ.
     Route: 048

REACTIONS (3)
  - Dementia [Recovering/Resolving]
  - Overdose [Unknown]
  - Restlessness [Unknown]
